FAERS Safety Report 20289659 (Version 1)
Quarter: 2022Q1

REPORT INFORMATION
  Report Type: Spontaneous
  Country: AU (occurrence: AU)
  Receive Date: 20220104
  Receipt Date: 20220104
  Transmission Date: 20220423
  Serious: Yes (Other)
  Sender: FDA-Public Use
  Company Number: AU-NOVARTISPH-NVSC2021AU300667

PATIENT
  Sex: Female

DRUGS (2)
  1. NITROGLYCERIN [Suspect]
     Active Substance: NITROGLYCERIN
     Indication: Product used for unknown indication
     Dosage: 25 MG, (FOR 3 YEARS)
     Route: 065
  2. NITROGLYCERIN [Suspect]
     Active Substance: NITROGLYCERIN
     Dosage: 50 MG (ANTIANGINAL AGENT)
     Route: 065

REACTIONS (1)
  - Angina unstable [Unknown]
